FAERS Safety Report 9705572 (Version 1)
Quarter: 2013Q4

REPORT INFORMATION
  Report Type: Spontaneous
  Country: US (occurrence: US)
  Receive Date: 20131122
  Receipt Date: 20131122
  Transmission Date: 20140711
  Serious: No
  Sender: FDA-Public Use
  Company Number: US-GILEAD-2008-0017009

PATIENT
  Sex: Female

DRUGS (12)
  1. LETAIRIS [Suspect]
     Indication: PULMONARY ARTERIAL HYPERTENSION
     Route: 048
     Dates: start: 20070827
  2. LASIX [Concomitant]
  3. NORVASC [Concomitant]
  4. FOSAMAX [Concomitant]
  5. ZETIA [Concomitant]
  6. PREMPRO [Concomitant]
  7. HYDROCHLOROTHIAZIDE [Concomitant]
  8. ASPIRIN [Concomitant]
  9. SINGULAIR [Concomitant]
  10. COSOPT [Concomitant]
  11. ADVAIR [Concomitant]
  12. AVINZA [Concomitant]

REACTIONS (1)
  - Nightmare [None]
